FAERS Safety Report 20861694 (Version 1)
Quarter: 2022Q2

REPORT INFORMATION
  Report Type: Spontaneous
  Country: NO (occurrence: NO)
  Receive Date: 20220523
  Receipt Date: 20220523
  Transmission Date: 20220721
  Serious: Yes (Hospitalization, Other)
  Sender: FDA-Public Use
  Company Number: NO-Merck Healthcare KGaA-9316731

PATIENT
  Sex: Male

DRUGS (2)
  1. PANTOPRAZOLE [Suspect]
     Active Substance: PANTOPRAZOLE
     Indication: Product used for unknown indication
     Dosage: UNK, AS NEEDED. NOT FREQUENT
  2. EUTHYROX [Suspect]
     Active Substance: LEVOTHYROXINE SODIUM
     Indication: Product used for unknown indication
     Dosage: UNK, 2 DAYS 150 MCG AND 5 DAYS 125 MCG

REACTIONS (3)
  - Cholelithiasis [Unknown]
  - Gallbladder obstruction [Unknown]
  - Appendicitis [Unknown]
